FAERS Safety Report 10088118 (Version 1)
Quarter: 2014Q2

REPORT INFORMATION
  Report Type: Spontaneous
  Country: US (occurrence: US)
  Receive Date: 20140421
  Receipt Date: 20140421
  Transmission Date: 20141212
  Serious: No
  Sender: FDA-Public Use
  Company Number: US-009507513-1404USA010396

PATIENT
  Age: 35 Year
  Sex: Male

DRUGS (3)
  1. CLARINEX [Suspect]
     Indication: HYPERSENSITIVITY
     Dosage: UNK
     Route: 048
     Dates: end: 201404
  2. PATADAY [Concomitant]
  3. NASONEX [Concomitant]
     Route: 055

REACTIONS (1)
  - Drug ineffective [Not Recovered/Not Resolved]
